FAERS Safety Report 8791744 (Version 3)
Quarter: 2012Q4

REPORT INFORMATION
  Report Type: Report from Study
  Country: BR (occurrence: BR)
  Receive Date: 20120918
  Receipt Date: 20120927
  Transmission Date: 20130627
  Serious: Yes (Other)
  Sender: FDA-Public Use
  Company Number: BR-ABBOTT-12P-020-0978637-00

PATIENT
  Sex: Male
  Weight: 74 kg

DRUGS (7)
  1. HUMIRA [Suspect]
     Indication: RHEUMATOID ARTHRITIS
     Route: 058
     Dates: start: 2009
  2. PREDNISONE [Concomitant]
     Indication: RHEUMATOID ARTHRITIS
     Route: 048
     Dates: start: 2002
  3. SELOZOK [Concomitant]
     Indication: CARDIAC DISORDER
     Route: 048
  4. GINCARE [Concomitant]
     Indication: CARDIOVASCULAR DISORDER
     Dates: start: 1997
  5. UNSPECIFIED MEDICATION [Concomitant]
     Indication: PRODUCT USED FOR UNKNOWN INDICATION
     Route: 048
  6. OMEPRAZOLE [Concomitant]
     Indication: GASTRIC DISORDER
     Route: 048
  7. CALCIUM [Concomitant]
     Indication: BONE DISORDER
     Route: 048

REACTIONS (7)
  - Tendon rupture [Recovering/Resolving]
  - Spinal fracture [Not Recovered/Not Resolved]
  - Oedema peripheral [Not Recovered/Not Resolved]
  - Tendon disorder [Not Recovered/Not Resolved]
  - Arthritis [Unknown]
  - Groin pain [Unknown]
  - Ill-defined disorder [Unknown]
